FAERS Safety Report 20566597 (Version 6)
Quarter: 2022Q3

REPORT INFORMATION
  Report Type: Report from Study
  Country: US (occurrence: US)
  Receive Date: 20220308
  Receipt Date: 20220824
  Transmission Date: 20221027
  Serious: Yes (Death, Hospitalization, Other)
  Sender: FDA-Public Use
  Company Number: US-TAKEDA-2021TUS070260

PATIENT
  Sex: Female

DRUGS (28)
  1. TEDUGLUTIDE [Suspect]
     Active Substance: TEDUGLUTIDE
     Indication: Short-bowel syndrome
     Dosage: 2.675 MILLIGRAM, QD
     Route: 058
     Dates: start: 20200303
  2. TEDUGLUTIDE [Suspect]
     Active Substance: TEDUGLUTIDE
     Indication: Short-bowel syndrome
     Dosage: 2.675 MILLIGRAM, QD
     Route: 058
     Dates: start: 20200303
  3. TEDUGLUTIDE [Suspect]
     Active Substance: TEDUGLUTIDE
     Indication: Short-bowel syndrome
     Dosage: 2.675 MILLIGRAM, QD
     Route: 058
     Dates: start: 20200303
  4. TEDUGLUTIDE [Suspect]
     Active Substance: TEDUGLUTIDE
     Indication: Short-bowel syndrome
     Dosage: 2.675 MILLIGRAM, QD
     Route: 058
     Dates: start: 20200303
  5. TEDUGLUTIDE [Suspect]
     Active Substance: TEDUGLUTIDE
     Indication: Malabsorption
     Dosage: 2.675 MILLIGRAM, QD
     Route: 058
     Dates: start: 20210803
  6. TEDUGLUTIDE [Suspect]
     Active Substance: TEDUGLUTIDE
     Indication: Malabsorption
     Dosage: 2.675 MILLIGRAM, QD
     Route: 058
     Dates: start: 20210803
  7. TEDUGLUTIDE [Suspect]
     Active Substance: TEDUGLUTIDE
     Indication: Malabsorption
     Dosage: 2.675 MILLIGRAM, QD
     Route: 058
     Dates: start: 20210803
  8. TEDUGLUTIDE [Suspect]
     Active Substance: TEDUGLUTIDE
     Indication: Malabsorption
     Dosage: 2.675 MILLIGRAM, QD
     Route: 058
     Dates: start: 20210803
  9. TEDUGLUTIDE [Suspect]
     Active Substance: TEDUGLUTIDE
     Indication: Diarrhoea
     Dosage: 2.675 MILLIGRAM, QD
     Route: 058
     Dates: start: 202109
  10. TEDUGLUTIDE [Suspect]
     Active Substance: TEDUGLUTIDE
     Indication: Diarrhoea
     Dosage: 2.675 MILLIGRAM, QD
     Route: 058
     Dates: start: 202109
  11. TEDUGLUTIDE [Suspect]
     Active Substance: TEDUGLUTIDE
     Indication: Diarrhoea
     Dosage: 2.675 MILLIGRAM, QD
     Route: 058
     Dates: start: 202109
  12. TEDUGLUTIDE [Suspect]
     Active Substance: TEDUGLUTIDE
     Indication: Diarrhoea
     Dosage: 2.675 MILLIGRAM, QD
     Route: 058
     Dates: start: 202109
  13. TEDUGLUTIDE [Suspect]
     Active Substance: TEDUGLUTIDE
     Dosage: 2.675 MILLIGRAM, QD
     Route: 058
     Dates: start: 20210916
  14. TEDUGLUTIDE [Suspect]
     Active Substance: TEDUGLUTIDE
     Dosage: 2.675 MILLIGRAM, QD
     Route: 058
     Dates: start: 20210916
  15. TEDUGLUTIDE [Suspect]
     Active Substance: TEDUGLUTIDE
     Dosage: 2.675 MILLIGRAM, QD
     Route: 058
     Dates: start: 20210916
  16. TEDUGLUTIDE [Suspect]
     Active Substance: TEDUGLUTIDE
     Dosage: 2.675 MILLIGRAM, QD
     Route: 058
     Dates: start: 20210916
  17. TEDUGLUTIDE [Suspect]
     Active Substance: TEDUGLUTIDE
     Dosage: 2.675 MILLIGRAM, QD
     Route: 058
     Dates: start: 20210917
  18. TEDUGLUTIDE [Suspect]
     Active Substance: TEDUGLUTIDE
     Dosage: 2.675 MILLIGRAM, QD
     Route: 058
     Dates: start: 20210917
  19. TEDUGLUTIDE [Suspect]
     Active Substance: TEDUGLUTIDE
     Dosage: 2.675 MILLIGRAM, QD
     Route: 058
     Dates: start: 20210917
  20. TEDUGLUTIDE [Suspect]
     Active Substance: TEDUGLUTIDE
     Dosage: 2.675 MILLIGRAM, QD
     Route: 058
     Dates: start: 20210917
  21. TEDUGLUTIDE [Suspect]
     Active Substance: TEDUGLUTIDE
     Dosage: 2.675 MILLIGRAM, QD
     Route: 058
     Dates: start: 20211004
  22. TEDUGLUTIDE [Suspect]
     Active Substance: TEDUGLUTIDE
     Dosage: 2.675 MILLIGRAM, QD
     Route: 058
     Dates: start: 20211004
  23. TEDUGLUTIDE [Suspect]
     Active Substance: TEDUGLUTIDE
     Dosage: 2.675 MILLIGRAM, QD
     Route: 058
     Dates: start: 20211004
  24. TEDUGLUTIDE [Suspect]
     Active Substance: TEDUGLUTIDE
     Dosage: 2.675 MILLIGRAM, QD
     Route: 058
     Dates: start: 20211004
  25. TEDUGLUTIDE [Suspect]
     Active Substance: TEDUGLUTIDE
     Dosage: 2.675 MILLIGRAM, QD
     Route: 058
  26. TEDUGLUTIDE [Suspect]
     Active Substance: TEDUGLUTIDE
     Dosage: 2.675 MILLIGRAM, QD
     Route: 058
  27. TEDUGLUTIDE [Suspect]
     Active Substance: TEDUGLUTIDE
     Dosage: 2.675 MILLIGRAM, QD
     Route: 058
  28. TEDUGLUTIDE [Suspect]
     Active Substance: TEDUGLUTIDE
     Dosage: 2.675 MILLIGRAM, QD
     Route: 058

REACTIONS (16)
  - Death [Fatal]
  - Hip fracture [Not Recovered/Not Resolved]
  - Fall [Unknown]
  - Ovarian cancer [Not Recovered/Not Resolved]
  - Frequent bowel movements [Unknown]
  - Decubitus ulcer [Unknown]
  - Diarrhoea [Unknown]
  - Fatigue [Unknown]
  - Injection site bruising [Unknown]
  - Abdominal distension [Unknown]
  - Flatulence [Unknown]
  - Nausea [Unknown]
  - Decreased appetite [Unknown]
  - Abdominal pain [Unknown]
  - Product preparation issue [Unknown]
  - Product dose omission issue [Unknown]
